FAERS Safety Report 8027231-6 (Version None)
Quarter: 2012Q1

REPORT INFORMATION
  Report Type: 
  Country: None (occurrence: None)
  Receive Date: 20120104
  Receipt Date: 20111222
  Transmission Date: 20120608
  Serious: Yes (Hospitalization)
  Sender: FDA-Public Use
  Company Number: 11-836

PATIENT
  Age: 62 Year
  Sex: Female

DRUGS (12)
  1. LISINOPRIL [Suspect]
     Indication: HYPERTENSION
     Route: 048
     Dates: start: 20020101, end: 20111213
  2. ASPIRIN [Concomitant]
  3. ACETAMINOPHEN AND CODEINE PHOSPHATE [Concomitant]
  4. FLUOXETINE [Concomitant]
  5. IBUPROFEN [Suspect]
     Indication: PAIN
     Route: 061
     Dates: start: 20111210, end: 20111213
  6. ALBUTEROL SULFATE AUTOHALER [Concomitant]
  7. OMEPRAZOLE [Concomitant]
  8. SYMBICORT [Concomitant]
  9. AMLODIPINE [Concomitant]
  10. PREDNISOLONE [Concomitant]
  11. SIMVASTATIN [Concomitant]
  12. TIOTROPIUM BROMID [Concomitant]

REACTIONS (1)
  - ANGIOEDEMA [None]
